FAERS Safety Report 19769075 (Version 1)
Quarter: 2021Q3

REPORT INFORMATION
  Report Type: Spontaneous
  Country: US (occurrence: US)
  Receive Date: 20210827
  Receipt Date: 20210827
  Transmission Date: 20211014
  Serious: Yes (Hospitalization)
  Sender: FDA-Public Use
  Company Number: None

PATIENT
  Age: 63 Year
  Sex: Male

DRUGS (1)
  1. EVEROLIMUS 5 MG HIKMA [Suspect]
     Active Substance: EVEROLIMUS
     Indication: LUNG NEOPLASM MALIGNANT
     Route: 048
     Dates: start: 20210707

REACTIONS (2)
  - Pneumonia [None]
  - Abdominal pain upper [None]

NARRATIVE: CASE EVENT DATE: 20210723
